FAERS Safety Report 21083272 (Version 2)
Quarter: 2022Q3

REPORT INFORMATION
  Report Type: Spontaneous
  Country: AU (occurrence: AU)
  Receive Date: 20220714
  Receipt Date: 20220804
  Transmission Date: 20221027
  Serious: Yes (Death)
  Sender: FDA-Public Use
  Company Number: AU-KARYOPHARM-2022KPT000775

PATIENT

DRUGS (1)
  1. XPOVIO [Suspect]
     Active Substance: SELINEXOR
     Indication: Plasma cell myeloma
     Dosage: 80 MG, WEEKLY
     Route: 048
     Dates: start: 20220616

REACTIONS (3)
  - Plasma cell myeloma [Fatal]
  - Disturbance in attention [Unknown]
  - Confusional state [Unknown]

NARRATIVE: CASE EVENT DATE: 20220601
